FAERS Safety Report 8547843-0 (Version None)
Quarter: 2012Q3

REPORT INFORMATION
  Report Type: 
  Country: None (occurrence: None)
  Receive Date: 20120727
  Receipt Date: 20120308
  Transmission Date: 20120928
  Serious: Yes (Other)
  Sender: FDA-Public Use
  Company Number: US-ASTRAZENECA-2012SE16565

PATIENT
  Age: 62 Year
  Sex: Male

DRUGS (5)
  1. COGENTIN [Concomitant]
  2. HALDOL [Concomitant]
     Route: 030
  3. SEROQUEL XR [Suspect]
     Indication: SCHIZOPHRENIA, PARANOID TYPE
     Route: 048
  4. SEROQUEL XR [Suspect]
     Route: 048
  5. DEPAKOTE [Suspect]
     Route: 065

REACTIONS (3)
  - BLOOD PRESSURE INCREASED [None]
  - BACK PAIN [None]
  - JUDGEMENT IMPAIRED [None]
